FAERS Safety Report 18806174 (Version 1)
Quarter: 2021Q1

REPORT INFORMATION
  Report Type: Spontaneous
  Country: CO (occurrence: CO)
  Receive Date: 20210129
  Receipt Date: 20210129
  Transmission Date: 20210419
  Serious: Yes (Hospitalization, Other)
  Sender: FDA-Public Use
  Company Number: CO-BAXTER-2021BAX001787

PATIENT
  Age: 5 Year
  Sex: Male
  Weight: 20.8 kg

DRUGS (3)
  1. ETOPOSIDE. [Suspect]
     Active Substance: ETOPOSIDE
     Indication: CHEMOTHERAPY
     Dosage: EVERY 24 HOURS
     Route: 042
     Dates: start: 20210118, end: 20210123
  2. UROMITEXAN 400 MG /4ML [Suspect]
     Active Substance: MESNA
     Indication: PROPHYLAXIS
     Dosage: HOUR 0 AND 3
     Route: 042
     Dates: start: 20210118, end: 20210118
  3. HOLOXAN INYECTABLE 1 G. [Suspect]
     Active Substance: IFOSFAMIDE
     Indication: CHEMOTHERAPY
     Dosage: SINGLE DOSE
     Route: 042
     Dates: start: 20210118, end: 20210118

REACTIONS (4)
  - Hypotonia [Recovered/Resolved]
  - Tachycardia [Recovered/Resolved]
  - Hypoxia [Recovered/Resolved]
  - Pallor [Recovered/Resolved]

NARRATIVE: CASE EVENT DATE: 20210118
